FAERS Safety Report 7964851-9 (Version None)
Quarter: 2011Q4

REPORT INFORMATION
  Report Type: 
  Country: None (occurrence: None)
  Receive Date: 20111208
  Receipt Date: 20111130
  Transmission Date: 20120403
  Serious: Yes (Other)
  Sender: FDA-Public Use
  Company Number: PHEH2011US02029

PATIENT
  Sex: Female

DRUGS (5)
  1. DIOVAN [Suspect]
     Dosage: 60 MG, UNK
  2. VITAMINS NOS [Concomitant]
     Dosage: UNK UKN, UNK
  3. DIOVAN [Suspect]
     Dosage: 80 MG, QD
  4. PREMARIN [Concomitant]
     Dosage: 0.3 MG, UNK
  5. DIOVAN [Suspect]
     Dosage: 40 MG, UNK

REACTIONS (4)
  - DRUG INTOLERANCE [None]
  - EXTRASYSTOLES [None]
  - INSOMNIA [None]
  - INCORRECT DOSE ADMINISTERED [None]
